FAERS Safety Report 7191621-4 (Version None)
Quarter: 2010Q4

REPORT INFORMATION
  Report Type: 
  Country: None (occurrence: None)
  Receive Date: 20101223
  Receipt Date: 20101206
  Transmission Date: 20110411
  Serious: Yes (Hospitalization, Other)
  Sender: FDA-Public Use
  Company Number: US-BAYER-201034973NA

PATIENT
  Sex: Male
  Weight: 97.052 kg

DRUGS (14)
  1. AVELOX [Suspect]
     Indication: SINUS CONGESTION
  2. AVELOX [Suspect]
     Indication: RESPIRATORY TRACT CONGESTION
  3. BIAXIN [Concomitant]
     Dosage: 500 MG, BID
  4. BENAZEPRIL [Concomitant]
  5. NEXIUM [Concomitant]
  6. THYROID [Concomitant]
  7. GUAIFENESIN [Concomitant]
  8. ADVAIR [Concomitant]
  9. SINGULAIR [Concomitant]
     Indication: RESPIRATORY TRACT CONGESTION
  10. PROAIR HFA [Concomitant]
  11. ALBUTEROL [Concomitant]
  12. ZYRTEC [Concomitant]
  13. NASONEX [Concomitant]
  14. DEPO-MEDROL [Concomitant]
     Dosage: 60 MG, UNK

REACTIONS (2)
  - CHROMATURIA [None]
  - HEPATIC ENZYME INCREASED [None]
